FAERS Safety Report 14189440 (Version 4)
Quarter: 2017Q4

REPORT INFORMATION
  Report Type: Report from Study
  Country: NL (occurrence: NL)
  Receive Date: 20171115
  Receipt Date: 20171222
  Transmission Date: 20180321
  Serious: Yes (Hospitalization)
  Sender: FDA-Public Use
  Company Number: NL-ROCHE-1712206

PATIENT
  Age: 27 Year
  Sex: Male
  Weight: 60 kg

DRUGS (19)
  1. ESOMEPRAZOL [Concomitant]
     Active Substance: ESOMEPRAZOLE
     Indication: HAEMORRHAGE PROPHYLAXIS
     Route: 048
     Dates: start: 20140101, end: 20151211
  2. THYRAX DUOTAB [Concomitant]
     Active Substance: LEVOTHYROXINE
     Indication: HYPOTHYROIDISM
     Route: 048
     Dates: start: 20160201, end: 20160513
  3. AMOXICILLIN/CLAVULANIC ACID [Concomitant]
     Active Substance: AMOXICILLIN\CLAVULANIC ACID
     Indication: PNEUMONIA
     Route: 048
     Dates: start: 20160201, end: 20160206
  4. METOCLOPRAMIDE. [Concomitant]
     Active Substance: METOCLOPRAMIDE
     Indication: PROPHYLAXIS OF NAUSEA AND VOMITING
     Route: 042
     Dates: start: 20160130, end: 20160201
  5. ATEZOLIZUMAB. [Suspect]
     Active Substance: ATEZOLIZUMAB
     Route: 042
     Dates: start: 20160219
  6. RANITIDINE. [Concomitant]
     Active Substance: RANITIDINE
     Indication: UPPER GASTROINTESTINAL HAEMORRHAGE
     Route: 048
     Dates: start: 20151211, end: 20160130
  7. EUTHYROX [Concomitant]
     Active Substance: LEVOTHYROXINE SODIUM
     Indication: HYPOTHYROIDISM
     Route: 048
     Dates: start: 20160513
  8. ATEZOLIZUMAB. [Suspect]
     Active Substance: ATEZOLIZUMAB
     Indication: NEOPLASM
     Dosage: MOST RECENT DOSE OF ATEZOLIZUMAB WAS ON 20/JAN/2016 (AT START TIME 15:27) PRIOR TO THE SAE.
     Route: 042
     Dates: start: 20151120, end: 20160210
  9. METRONIDAZOL [Concomitant]
     Active Substance: METRONIDAZOLE
     Indication: INFECTION PROPHYLAXIS
     Route: 048
     Dates: start: 20151212, end: 20160130
  10. CIPROFLOXACINE [Concomitant]
     Active Substance: CIPROFLOXACIN
     Indication: PNEUMONIA
     Route: 042
     Dates: start: 20160130, end: 20160201
  11. MAGNESIUM SULFATE. [Concomitant]
     Active Substance: MAGNESIUM SULFATE
     Indication: HYPOMAGNESAEMIA
     Route: 042
     Dates: start: 20160201, end: 20160201
  12. RANITIDINE. [Concomitant]
     Active Substance: RANITIDINE
     Indication: COLITIS
     Route: 048
     Dates: start: 20160209, end: 20160213
  13. NYSTATINE [Concomitant]
     Indication: PNEUMONIA
     Route: 048
     Dates: start: 20160130, end: 20160310
  14. AMOXICILLIN/CLAVULANIC ACID [Concomitant]
     Active Substance: AMOXICILLIN\CLAVULANIC ACID
     Route: 042
     Dates: start: 20160130, end: 20160206
  15. TRIAMCINOLONE ACETONIDE. [Concomitant]
     Active Substance: TRIAMCINOLONE ACETONIDE
     Indication: RASH MACULO-PAPULAR
     Dosage: DOSE: 1 MG/G, TOTAL DAILY DOSE: 2MG/G
     Route: 061
     Dates: start: 20161007
  16. PARACETAMOL [Concomitant]
     Active Substance: ACETAMINOPHEN
     Indication: PNEUMONIA
     Route: 048
     Dates: start: 20160130, end: 20160201
  17. CLEMASTINE [Concomitant]
     Active Substance: CLEMASTINE
     Indication: RASH MACULO-PAPULAR
     Dosage: UNKNOWN
     Route: 048
     Dates: start: 20161007
  18. RANITIDINE. [Concomitant]
     Active Substance: RANITIDINE
     Indication: PROPHYLAXIS
     Route: 048
     Dates: start: 20160310
  19. POTASSIUM CHLORIDE. [Concomitant]
     Active Substance: POTASSIUM CHLORIDE
     Indication: HYPOKALAEMIA
     Route: 048
     Dates: start: 20160201, end: 20160201

REACTIONS (1)
  - Gastrointestinal haemorrhage [Recovered/Resolved]

NARRATIVE: CASE EVENT DATE: 20160209
